FAERS Safety Report 9430403 (Version 4)
Quarter: 2015Q1

REPORT INFORMATION
  Report Type: Spontaneous
  Country: JP (occurrence: JP)
  Receive Date: 20130730
  Receipt Date: 20150206
  Transmission Date: 20150721
  Serious: Yes (Life-Threatening, Hospitalization, Other)
  Sender: FDA-Public Use
  Company Number: JP-GLAXOSMITHKLINE-B0899723A

PATIENT
  Age: 65 Year
  Sex: Male
  Weight: 49 kg

DRUGS (6)
  1. MYONAL [Concomitant]
     Active Substance: EPERISONE HYDROCHLORIDE
     Indication: NEURALGIA
     Dosage: 50 MG, TID
  2. GABALON [Concomitant]
     Active Substance: BACLOFEN
     Indication: NEURALGIA
     Dosage: 5 MG, TID
  3. LYRICA [Concomitant]
     Active Substance: PREGABALIN
     Indication: NEURALGIA
     Dosage: 75 MG, BID
  4. VALACICLOVIR HYDROCHLORIDE [Suspect]
     Active Substance: VALACYCLOVIR HYDROCHLORIDE
     Indication: HERPES ZOSTER
     Dosage: 1000 MG, TID
     Route: 048
     Dates: start: 20130527, end: 20130610
  5. LOXONIN [Suspect]
     Active Substance: LOXOPROFEN SODIUM
     Dosage: 60 MG, TID
     Route: 048
  6. TENORMIN [Concomitant]
     Active Substance: ATENOLOL
     Indication: NEURALGIA
     Dosage: 50 MG, QD

REACTIONS (8)
  - Altered state of consciousness [Recovering/Resolving]
  - Nephropathy [Recovering/Resolving]
  - Confusional state [Unknown]
  - Overdose [Unknown]
  - Shock [Recovering/Resolving]
  - Toxic encephalopathy [Recovering/Resolving]
  - Blood pressure decreased [Unknown]
  - Renal impairment [Recovering/Resolving]

NARRATIVE: CASE EVENT DATE: 20130611
